FAERS Safety Report 13974118 (Version 1)
Quarter: 2017Q3

REPORT INFORMATION
  Report Type: Spontaneous
  Country: US (occurrence: US)
  Receive Date: 20170915
  Receipt Date: 20170915
  Transmission Date: 20171128
  Serious: No
  Sender: FDA-Public Use
  Company Number: US-BAUSCH-BL-2017-004878

PATIENT
  Sex: Male

DRUGS (2)
  1. FLUOROURACIL 5% [Suspect]
     Active Substance: FLUOROURACIL
     Indication: SKIN DISORDER
     Route: 065
     Dates: start: 2017
  2. FLUCONAZOLE. [Suspect]
     Active Substance: FLUCONAZOLE
     Indication: SKIN DISORDER
     Route: 065
     Dates: start: 2017

REACTIONS (3)
  - Burning sensation [Unknown]
  - Erythema [Unknown]
  - Drug ineffective [Unknown]
